FAERS Safety Report 10458110 (Version 1)
Quarter: 2014Q3

REPORT INFORMATION
  Report Type: Spontaneous
  Country: GB (occurrence: GB)
  Receive Date: 20140917
  Receipt Date: 20140917
  Transmission Date: 20150326
  Serious: Yes (Other)
  Sender: FDA-Public Use
  Company Number: GB-AUROBINDO-AUR-APL-2014-09683

PATIENT
  Age: 81 Year
  Sex: Male

DRUGS (1)
  1. BISOPROLOL [Suspect]
     Active Substance: BISOPROLOL
     Indication: TACHYCARDIA
     Dosage: UNK
     Route: 065
     Dates: start: 201208

REACTIONS (3)
  - Tachycardia [Unknown]
  - Off label use [Unknown]
  - Asthenia [Not Recovered/Not Resolved]
